FAERS Safety Report 7527017-2 (Version None)
Quarter: 2011Q2

REPORT INFORMATION
  Report Type: 
  Country: None (occurrence: None)
  Receive Date: 20110606
  Receipt Date: 20101026
  Transmission Date: 20111010
  Serious: No
  Sender: FDA-Public Use
  Company Number: US-BAYER-201038585NA

PATIENT
  Age: 63 Year
  Sex: Female

DRUGS (4)
  1. AVELOX [Suspect]
     Indication: SINUSITIS
  2. AVELOX [Suspect]
     Indication: RESPIRATORY TRACT CONGESTION
     Dosage: 400 MG, UNK
     Route: 048
     Dates: start: 20101015, end: 20101015
  3. AVELOX [Suspect]
     Indication: OROPHARYNGEAL PAIN
  4. AVELOX [Suspect]
     Indication: HEADACHE

REACTIONS (5)
  - RASH [None]
  - PRURITUS [None]
  - URTICARIA [None]
  - PRURITUS GENERALISED [None]
  - PARAESTHESIA [None]
